FAERS Safety Report 5181082-9 (Version None)
Quarter: 2006Q4

REPORT INFORMATION
  Report Type: 
  Country: None (occurrence: None)
  Receive Date: 20061218
  Receipt Date: 20061218
  Transmission Date: 20070319
  Serious: No
  Sender: FDA-Public Use
  Company Number: None

PATIENT
  Age: 68 Year
  Sex: Female
  Weight: 49.8957 kg

DRUGS (1)
  1. FOSAMAX [Suspect]
     Indication: OSTEOPOROSIS
     Dosage: ONE TABLET EVERY FRIDAY ORALLY
     Route: 048
     Dates: start: 20060101, end: 20060916

REACTIONS (4)
  - CHEST PAIN [None]
  - CONFUSIONAL STATE [None]
  - GASTROINTESTINAL PAIN [None]
  - PRESYNCOPE [None]
